FAERS Safety Report 4434564-9 (Version None)
Quarter: 2004Q3

REPORT INFORMATION
  Report Type: 
  Country: None (occurrence: None)
  Receive Date: 20040721
  Receipt Date: 20031110
  Transmission Date: 20050211
  Serious: Yes (Hospitalization)
  Sender: FDA-Public Use
  Company Number: WAES 0311USA01040

PATIENT

DRUGS (3)
  1. VIOXX [Suspect]
     Dosage: PO
     Route: 048
  2. BEXTRA [Concomitant]
  3. NONSTEROIDAL ANTI-INFLAMMATORY [Concomitant]

REACTIONS (1)
  - RENAL FAILURE [None]
